FAERS Safety Report 8625636-3 (Version None)
Quarter: 2012Q3

REPORT INFORMATION
  Report Type: 
  Country: None (occurrence: None)
  Receive Date: 20120827
  Receipt Date: 20120813
  Transmission Date: 20120928
  Serious: Yes (Hospitalization)
  Sender: FDA-Public Use
  Company Number: IT-MYLANLABS-2012S1017082

PATIENT
  Age: 40 Year
  Sex: Female

DRUGS (8)
  1. OLANZAPINE [Suspect]
     Dosage: 10MG
     Route: 048
  2. CLOMIPRAMINE HCL [Concomitant]
     Dosage: 75 MG/DAY
     Route: 065
  3. DIAZEPAM [Concomitant]
     Dosage: 10MG
     Route: 030
  4. DIAZEPAM [Concomitant]
     Dosage: 10MG
     Route: 042
  5. PROMAZINE HYDROCHLORIDE [Suspect]
     Dosage: 100MG
     Route: 030
  6. CHLORPROMAZINE HCL [Suspect]
     Dosage: 100 MG/DAY
     Route: 065
  7. ARIPIPRAZOLE [Suspect]
     Dosage: 5 MG/DAY
     Route: 065
  8. BUPROPION HCL [Concomitant]
     Dosage: 150 MG/DAY
     Route: 065

REACTIONS (2)
  - CATATONIA [None]
  - NEUROLEPTIC MALIGNANT SYNDROME [None]
